FAERS Safety Report 5571610-3 (Version None)
Quarter: 2007Q4

REPORT INFORMATION
  Report Type: 
  Country: None (occurrence: None)
  Receive Date: 20071221
  Receipt Date: 20060124
  Transmission Date: 20080405
  Serious: No
  Sender: FDA-Public Use
  Company Number: A0571246A

PATIENT
  Age: 78 Year
  Sex: Male

DRUGS (7)
  1. FLONASE [Suspect]
     Dosage: 2SPR TWICE PER DAY
     Route: 045
     Dates: start: 20050701
  2. IBUPROFEN [Concomitant]
  3. DYAZIDE [Concomitant]
  4. LIPITOR [Concomitant]
  5. TRAVATAN [Concomitant]
  6. METOPROLOL [Concomitant]
  7. TIMOLOL MALEATE [Concomitant]

REACTIONS (3)
  - DYSPHONIA [None]
  - NAUSEA [None]
  - VISION BLURRED [None]
